FAERS Safety Report 25332467 (Version 2)
Quarter: 2025Q2

REPORT INFORMATION
  Report Type: Spontaneous
  Country: HR (occurrence: HR)
  Receive Date: 20250519
  Receipt Date: 20250523
  Transmission Date: 20250716
  Serious: Yes (Other)
  Sender: NOVARTIS
  Company Number: HR-002147023-NVSC2025HR078303

PATIENT
  Sex: Male

DRUGS (3)
  1. COSENTYX [Suspect]
     Active Substance: SECUKINUMAB
     Indication: Ankylosing spondylitis
     Route: 065
     Dates: start: 201907, end: 202008
  2. COSENTYX [Suspect]
     Active Substance: SECUKINUMAB
     Route: 065
     Dates: start: 202008
  3. SULFASALAZINE [Concomitant]
     Active Substance: SULFASALAZINE
     Indication: Product used for unknown indication
     Route: 065
     Dates: start: 202110

REACTIONS (23)
  - Cushing^s syndrome [Unknown]
  - Diabetes insipidus [Unknown]
  - Neoplasm [Unknown]
  - Hepatic enzyme increased [Unknown]
  - Pain [Unknown]
  - Pain in extremity [Unknown]
  - Arthralgia [Unknown]
  - Dactylitis [Unknown]
  - Osteosclerosis [Unknown]
  - Temporomandibular pain and dysfunction syndrome [Unknown]
  - Testicular pain [Unknown]
  - Skin striae [Unknown]
  - Cushingoid [Unknown]
  - Acne [Unknown]
  - Gastroenteritis [Unknown]
  - Pyrexia [Unknown]
  - Abdominal pain [Unknown]
  - Diarrhoea [Unknown]
  - C-reactive protein increased [Unknown]
  - Tendon pain [Unknown]
  - Joint swelling [Unknown]
  - Arthritis [Unknown]
  - Synovitis [Unknown]

NARRATIVE: CASE EVENT DATE: 20190101
